FAERS Safety Report 9003271 (Version 2)
Quarter: 2013Q1

REPORT INFORMATION
  Report Type: Spontaneous
  Country: US (occurrence: US)
  Receive Date: 20130108
  Receipt Date: 20130227
  Transmission Date: 20140127
  Serious: No
  Sender: FDA-Public Use
  Company Number: US-BAYER-2013-002325

PATIENT
  Age: 20 Year
  Sex: Female
  Weight: 69 kg

DRUGS (4)
  1. MIRENA [Suspect]
     Indication: CONTRACEPTION
     Dosage: 20 MCG/24HR, CONT
     Route: 015
     Dates: start: 20120420, end: 20121207
  2. LORATADIN [Concomitant]
     Indication: MULTIPLE ALLERGIES
     Dosage: 10 MG, QD
  3. VESICARE [Concomitant]
     Indication: URINARY TRACT DISORDER
     Dosage: 5 MG, QD
  4. WELLBUTRIN [Concomitant]
     Dosage: 75 MG, QD

REACTIONS (2)
  - Device expulsion [Recovered/Resolved]
  - Abdominal pain lower [Recovered/Resolved]
